FAERS Safety Report 21136483 (Version 1)
Quarter: 2022Q3

REPORT INFORMATION
  Report Type: Report from Study
  Country: BR (occurrence: BR)
  Receive Date: 20220727
  Receipt Date: 20220727
  Transmission Date: 20221026
  Serious: Yes (Hospitalization)
  Sender: FDA-Public Use
  Company Number: BR-BIOGEN-2022BI01141290

PATIENT
  Age: 42 Year
  Sex: Female
  Weight: 75 kg

DRUGS (4)
  1. TECFIDERA [Suspect]
     Active Substance: DIMETHYL FUMARATE
     Indication: Multiple sclerosis
     Route: 050
     Dates: start: 202011, end: 202112
  2. TECFIDERA [Suspect]
     Active Substance: DIMETHYL FUMARATE
     Dosage: WHENEVER THERE IS A SHORTAGE OF TYSABRI
     Route: 050
     Dates: start: 202112
  3. LOSARTAN [Concomitant]
     Active Substance: LOSARTAN
     Indication: Hypertension
     Route: 050
     Dates: start: 2000
  4. AMLODIPINE [Concomitant]
     Active Substance: AMLODIPINE BESYLATE
     Indication: Hypertension
     Route: 050

REACTIONS (7)
  - Syncope [Recovered/Resolved]
  - Hallucination [Recovered/Resolved]
  - Weight increased [Recovered/Resolved]
  - Swelling [Recovered/Resolved]
  - Drug ineffective [Recovered/Resolved]
  - Magnetic resonance imaging head abnormal [Not Recovered/Not Resolved]
  - Magnetic resonance imaging spinal abnormal [Not Recovered/Not Resolved]

NARRATIVE: CASE EVENT DATE: 20201101
